FAERS Safety Report 6342677-X (Version None)
Quarter: 2009Q3

REPORT INFORMATION
  Report Type: 
  Country: None (occurrence: None)
  Receive Date: 20090908
  Receipt Date: 20061031
  Transmission Date: 20100115
  Serious: Yes (Death, Congenital Anomaly, Other)
  Sender: FDA-Public Use
  Company Number: JP-ROCHE-444597

PATIENT
  Sex: Female

DRUGS (1)
  1. TAMIFLU [Suspect]
     Indication: INFLUENZA
     Route: 048
     Dates: start: 20060123, end: 20060125

REACTIONS (3)
  - CYTOGENETIC ABNORMALITY [None]
  - HYDROPS FOETALIS [None]
  - INTRA-UTERINE DEATH [None]
